FAERS Safety Report 11106841 (Version 1)
Quarter: 2015Q2

REPORT INFORMATION
  Report Type: Spontaneous
  Country: FR (occurrence: None)
  Receive Date: 20150508
  Receipt Date: 20150508
  Transmission Date: 20150821
  Serious: Yes (Life-Threatening, Hospitalization, Other)
  Sender: FDA-Public Use
  Company Number: 2015COR00089

PATIENT
  Age: 50 Year
  Sex: Female

DRUGS (3)
  1. ALCOHOL. [Suspect]
     Active Substance: ALCOHOL
     Route: 048
  2. TRAMADOL (TRAMADOL) UNKNOWN [Suspect]
     Active Substance: TRAMADOL
     Route: 048
  3. ALPRAZOLAM (ALPRAZOLAM) UNKNOWN [Suspect]
     Active Substance: ALPRAZOLAM
     Route: 048

REACTIONS (13)
  - Respiratory arrest [None]
  - Atrioventricular block [None]
  - Toxicity to various agents [None]
  - Mydriasis [None]
  - Ejection fraction decreased [None]
  - Electrocardiogram QRS complex prolonged [None]
  - Somnolence [None]
  - Drug interaction [None]
  - Ventricular tachycardia [None]
  - Cardiogenic shock [None]
  - Intentional overdose [None]
  - Cyanosis [None]
  - Epilepsy [None]
